FAERS Safety Report 18990137 (Version 1)
Quarter: 2021Q1

REPORT INFORMATION
  Report Type: Spontaneous
  Country: US (occurrence: US)
  Receive Date: 20210310
  Receipt Date: 20210310
  Transmission Date: 20210420
  Serious: Yes (Hospitalization, Other)
  Sender: FDA-Public Use
  Company Number: US-NOVOPROD-792067

PATIENT
  Sex: Male

DRUGS (1)
  1. OZEMPIC [Suspect]
     Active Substance: SEMAGLUTIDE
     Indication: DIABETES MELLITUS
     Dosage: UNK
     Route: 058
     Dates: start: 2016, end: 202011

REACTIONS (4)
  - Skin cancer [Unknown]
  - Irritability [Unknown]
  - Abdominal pain lower [Unknown]
  - Lymphoma [Unknown]

NARRATIVE: CASE EVENT DATE: 202011
